FAERS Safety Report 9319285 (Version 5)
Quarter: 2013Q2

REPORT INFORMATION
  Report Type: Spontaneous
  Country: US (occurrence: US)
  Receive Date: 20130530
  Receipt Date: 20130626
  Transmission Date: 20140414
  Serious: Yes (Hospitalization, Other)
  Sender: FDA-Public Use
  Company Number: US-JNJFOC-20130513495

PATIENT
  Age: 77 Year
  Sex: Female

DRUGS (2)
  1. XARELTO [Suspect]
     Indication: CEREBROVASCULAR ACCIDENT PROPHYLAXIS
     Route: 048
     Dates: start: 20130126, end: 20130205
  2. XARELTO [Suspect]
     Indication: ATRIAL FIBRILLATION
     Route: 048
     Dates: start: 20130126, end: 20130205

REACTIONS (4)
  - Retroperitoneal haemorrhage [Recovered/Resolved]
  - Multi-organ failure [Recovered/Resolved]
  - Renal failure [Recovered/Resolved]
  - Creatinine renal clearance decreased [Unknown]
